FAERS Safety Report 5115335-7 (Version None)
Quarter: 2006Q3

REPORT INFORMATION
  Report Type: 
  Country: None (occurrence: None)
  Receive Date: 20060926
  Receipt Date: 20060918
  Transmission Date: 20061208
  Serious: Yes (Death)
  Sender: FDA-Public Use
  Company Number: GB-ALLERGAN-0605254US

PATIENT
  Age: 52 Year
  Sex: Female

DRUGS (3)
  1. BOTULINUM TOXIN TYPE A UNK [Suspect]
     Indication: HYPERTONIC BLADDER
     Dosage: 300 UNITS, SINGLE
     Route: 030
  2. GENTAMYCIN-MP [Concomitant]
     Indication: PROPHYLAXIS
     Dosage: 3 MG/KG, UNK
  3. CIPROFLOXACIN [Concomitant]
     Indication: PROPHYLAXIS
     Route: 048

REACTIONS (1)
  - BRONCHOPNEUMONIA [None]
